FAERS Safety Report 25833272 (Version 1)
Quarter: 2025Q3

REPORT INFORMATION
  Report Type: Spontaneous
  Country: DZ (occurrence: DZ)
  Receive Date: 20250922
  Receipt Date: 20250922
  Transmission Date: 20251020
  Serious: Yes (Hospitalization, Other)
  Sender: TAKEDA
  Company Number: DZ-TAKEDA-2025TUS081833

PATIENT
  Age: 10 Year
  Sex: Male

DRUGS (1)
  1. FEIBA NF [Suspect]
     Active Substance: ANTI-INHIBITOR COAGULANT COMPLEX
     Indication: Haemophilia
     Dates: start: 20200514, end: 20250914

REACTIONS (2)
  - Respiratory distress [Unknown]
  - Hypersensitivity [Unknown]
